FAERS Safety Report 4942991-6 (Version None)
Quarter: 2006Q1

REPORT INFORMATION
  Report Type: 
  Country: None (occurrence: None)
  Receive Date: 20060314
  Receipt Date: 20060309
  Transmission Date: 20060701
  Serious: Yes (Other)
  Sender: FDA-Public Use
  Company Number: US-GLAXOSMITHKLINE-A0597167A

PATIENT
  Age: 44 Year
  Sex: Female

DRUGS (6)
  1. BUPROPION HCL [Suspect]
     Indication: DEPRESSION
     Dosage: 150MG UNKNOWN
     Route: 048
     Dates: start: 20060222
  2. ZOLOFT [Concomitant]
     Dosage: 50MG PER DAY
  3. SYNTHROID [Concomitant]
  4. PRENATAL VITAMINS [Concomitant]
  5. CITRUCEL [Concomitant]
  6. ANTACID TAB [Concomitant]

REACTIONS (2)
  - DRUG EXPOSURE DURING PREGNANCY [None]
  - FOETAL HEART RATE ABNORMAL [None]
